FAERS Safety Report 22188055 (Version 3)
Quarter: 2023Q2

REPORT INFORMATION
  Report Type: Report from Study
  Country: CA (occurrence: CA)
  Receive Date: 20230408
  Receipt Date: 20230508
  Transmission Date: 20230722
  Serious: Yes (Other)
  Sender: FDA-Public Use
  Company Number: CA-002147023-NVSC2023CA079041

PATIENT
  Sex: Female

DRUGS (1)
  1. MAYZENT [Suspect]
     Active Substance: SIPONIMOD
     Indication: Secondary progressive multiple sclerosis
     Dosage: UNK UNK, QD
     Route: 048
     Dates: start: 20230113

REACTIONS (6)
  - Multiple sclerosis [Unknown]
  - Pain in extremity [Unknown]
  - Dysstasia [Unknown]
  - Muscular weakness [Unknown]
  - Fatigue [Recovering/Resolving]
  - Dizziness [Recovering/Resolving]
